FAERS Safety Report 14333324 (Version 1)
Quarter: 2017Q4

REPORT INFORMATION
  Report Type: Spontaneous
  Country: US (occurrence: US)
  Receive Date: 20171228
  Receipt Date: 20171228
  Transmission Date: 20180321
  Serious: No
  Sender: FDA-Public Use
  Company Number: US-LUNDBECK-DKLU2034350

PATIENT
  Sex: Female

DRUGS (2)
  1. NORTHERA [Suspect]
     Active Substance: DROXIDOPA
     Indication: PRODUCT USED FOR UNKNOWN INDICATION
     Dosage: SCHEDULE B AND TITRATING
     Route: 048
  2. NORTHERA [Suspect]
     Active Substance: DROXIDOPA
     Indication: PRODUCT USED FOR UNKNOWN INDICATION
     Dosage: SCHEDULE B AND TITRATING
     Route: 048

REACTIONS (19)
  - Asthenia [Unknown]
  - Arthralgia [Unknown]
  - Neck pain [Unknown]
  - Dizziness [Unknown]
  - Amnesia [Unknown]
  - Tremor [Unknown]
  - Nausea [Unknown]
  - Insomnia [Unknown]
  - Feeling cold [Unknown]
  - Dyspnoea [Unknown]
  - Dyspepsia [Unknown]
  - Mood altered [Unknown]
  - Fatigue [Unknown]
  - Migraine [Unknown]
  - Anxiety [Unknown]
  - Peripheral swelling [Unknown]
  - Epstein-Barr virus infection [Unknown]
  - Feeling abnormal [Unknown]
  - Orthostatic intolerance [Unknown]
